FAERS Safety Report 5266550-3 (Version None)
Quarter: 2007Q1

REPORT INFORMATION
  Report Type: 
  Country: None (occurrence: None)
  Receive Date: 20070315
  Receipt Date: 20070307
  Transmission Date: 20070707
  Serious: Yes (Other)
  Sender: FDA-Public Use
  Company Number: US-SHR-US-2006-040478

PATIENT
  Age: 44 Year
  Sex: Female
  Weight: 70.748 kg

DRUGS (5)
  1. BETASERON [Suspect]
     Indication: RELAPSING-REMITTING MULTIPLE SCLEROSIS
     Dosage: 4 MIU, EVERY 2D
     Route: 058
     Dates: start: 20061118
  2. XANAX [Concomitant]
     Dosage: .5 MG, UNK
     Route: 048
  3. PAXIL [Concomitant]
     Dosage: 40 MG, UNK
     Route: 048
  4. PREVACID [Concomitant]
     Dosage: 30 MG, UNK
     Route: 048
  5. ELEVAL [Concomitant]
     Route: 048

REACTIONS (2)
  - INFLUENZA [None]
  - SYNCOPE [None]
